FAERS Safety Report 6639108-9 (Version None)
Quarter: 2010Q1

REPORT INFORMATION
  Report Type: 
  Country: None (occurrence: None)
  Receive Date: 20100317
  Receipt Date: 20100308
  Transmission Date: 20100710
  Serious: Yes (Hospitalization, Other)
  Sender: FDA-Public Use
  Company Number: US-AMGEN-QUU398037

PATIENT
  Sex: Female
  Weight: 60.4 kg

DRUGS (13)
  1. NPLATE [Suspect]
     Indication: IDIOPATHIC THROMBOCYTOPENIC PURPURA
     Dates: start: 20081128, end: 20091223
  2. FERROUS SULFATE TAB [Concomitant]
     Route: 048
  3. RITUXIMAB [Concomitant]
  4. CORTICOSTEROIDS [Concomitant]
  5. DANAZOL [Concomitant]
     Dates: start: 20080101
  6. IMMU-G [Concomitant]
     Route: 042
  7. AMBIEN [Concomitant]
     Route: 048
  8. ATIVAN [Concomitant]
     Route: 048
  9. LISINOPRIL [Concomitant]
     Route: 048
  10. PRILOSEC [Concomitant]
     Route: 048
  11. PROCARDIA XL [Concomitant]
  12. TOPAMAX [Concomitant]
     Route: 048
  13. ZOLPIDEM [Concomitant]
     Route: 048

REACTIONS (11)
  - CELLULITIS [None]
  - DEHYDRATION [None]
  - DRUG INEFFECTIVE [None]
  - INSOMNIA [None]
  - IRON DEFICIENCY ANAEMIA [None]
  - NAUSEA [None]
  - PAIN [None]
  - PARONYCHIA [None]
  - PLATELET COUNT DECREASED [None]
  - SPLENECTOMY [None]
  - VAGINAL HAEMORRHAGE [None]
